FAERS Safety Report 20958594 (Version 1)
Quarter: 2022Q2

REPORT INFORMATION
  Report Type: Other
  Country: US (occurrence: None)
  Receive Date: 20220614
  Receipt Date: 20220614
  Transmission Date: 20220720
  Serious: Yes (Congenital Anomaly, Other)
  Sender: FDA-Public Use
  Company Number: US-ROCHE-3115322

PATIENT
  Sex: Male
  Weight: 3.895 kg

DRUGS (2)
  1. OSELTAMIVIR [Suspect]
     Active Substance: OSELTAMIVIR
     Indication: Product used for unknown indication
     Route: 064
  2. SOTALOL [Suspect]
     Active Substance: SOTALOL
     Indication: Product used for unknown indication
     Route: 064

REACTIONS (5)
  - Foetal exposure during pregnancy [Unknown]
  - Atrial flutter [Unknown]
  - Pericardial effusion [Unknown]
  - Patent ductus arteriosus [Unknown]
  - Supraventricular tachycardia [Unknown]
